FAERS Safety Report 9378527 (Version 5)
Quarter: 2014Q2

REPORT INFORMATION
  Report Type: Spontaneous
  Country: AR (occurrence: AR)
  Receive Date: 20130702
  Receipt Date: 20140521
  Transmission Date: 20141212
  Serious: Yes (Other)
  Sender: FDA-Public Use
  Company Number: AR-AMGEN-ARGSP2013045999

PATIENT
  Age: 63 Year
  Sex: Female

DRUGS (1)
  1. ENBREL [Suspect]
     Indication: RHEUMATOID ARTHRITIS
     Dosage: 50 MG, WEEKLY
     Route: 065
     Dates: start: 20060912

REACTIONS (6)
  - Spinal fracture [Not Recovered/Not Resolved]
  - Bedridden [Unknown]
  - Nephrolithiasis [Not Recovered/Not Resolved]
  - Cerebral ischaemia [Recovering/Resolving]
  - Fatigue [Unknown]
  - Influenza [Recovering/Resolving]
